FAERS Safety Report 23035327 (Version 1)
Quarter: 2023Q4

REPORT INFORMATION
  Report Type: Spontaneous
  Country: CN (occurrence: CN)
  Receive Date: 20231005
  Receipt Date: 20231005
  Transmission Date: 20240109
  Serious: Yes (Hospitalization)
  Sender: FDA-Public Use
  Company Number: None

PATIENT
  Age: 52 Year
  Sex: Male
  Weight: 73.5 kg

DRUGS (14)
  1. CYCLOPHOSPHAMIDE [Suspect]
     Active Substance: CYCLOPHOSPHAMIDE
     Indication: Brain neoplasm malignant
     Dosage: UNK (FIRST TO THIRD CYCLE) USED TO DILUTE SODIUM CHLOIRDE
     Route: 041
  2. CYCLOPHOSPHAMIDE [Suspect]
     Active Substance: CYCLOPHOSPHAMIDE
     Indication: Chemotherapy
     Dosage: 1000MG, ONE TIME IN ONE DAY, DILUTED WITH 500ML OF SODIUM CHLORIDE (FOURTH CYCLE, 20% REDUCTION)
     Route: 041
     Dates: start: 20230901, end: 20230902
  3. SODIUM CHLORIDE [Suspect]
     Active Substance: SODIUM CHLORIDE
     Indication: Medication dilution
     Dosage: UNK, DILUTED WITH CYCLOPHOSPHAMIDE
     Route: 041
  4. SODIUM CHLORIDE [Suspect]
     Active Substance: SODIUM CHLORIDE
     Dosage: 500 ML, ONE TIME IN ONE DAY, USED TO DILUTE 1000MG OF CYCLOPHOSPHAMIDE
     Route: 041
     Dates: start: 20230901, end: 20230902
  5. SODIUM CHLORIDE [Suspect]
     Active Substance: SODIUM CHLORIDE
     Dosage: UNK, DILUTED WITH CISPLATIN
     Route: 041
  6. SODIUM CHLORIDE [Suspect]
     Active Substance: SODIUM CHLORIDE
     Dosage: 500 ML, ONE TIME IN ONE DAY, USED TO DILUTE 50MG OF CISPLATIN
     Route: 041
     Dates: start: 20230901, end: 20230902
  7. SODIUM CHLORIDE [Suspect]
     Active Substance: SODIUM CHLORIDE
     Dosage: UNK, DILUTED WITH VINDESINE SULFATE
     Route: 042
  8. SODIUM CHLORIDE [Suspect]
     Active Substance: SODIUM CHLORIDE
     Dosage: 20 ML, ONE TIME IN ONE DAY, USED TO DILUTE 4MG OF VINDESINE SULFATE
     Route: 042
     Dates: start: 20230901, end: 20230901
  9. SODIUM CHLORIDE [Suspect]
     Active Substance: SODIUM CHLORIDE
     Dosage: 20 ML, ONE TIME IN ONE DAY, USED TO DILUTE 4MG OF VINDESINE SULFATE
     Route: 042
     Dates: start: 20230907, end: 20230907
  10. VINDESINE SULFATE [Suspect]
     Active Substance: VINDESINE SULFATE
     Indication: Brain neoplasm malignant
     Dosage: UNK (FIRST TO THIRD CYCLE) USED TO DILUTE SODIUM CHLOIRDE
     Route: 042
  11. VINDESINE SULFATE [Suspect]
     Active Substance: VINDESINE SULFATE
     Indication: Chemotherapy
     Dosage: 4MG, ONE TIME IN ONE DAY, DILUTED WITH 20ML OF SODIUM CHLORIDE (FOURTH CYCLE)
     Route: 042
     Dates: start: 20230901, end: 20230901
  12. VINDESINE SULFATE [Suspect]
     Active Substance: VINDESINE SULFATE
     Dosage: 4MG, ONE TIME IN ONE DAY, DILUTED WITH 20ML OF SODIUM CHLORIDE (FOURTH CYCLE)
     Route: 042
     Dates: start: 20230907, end: 20230907
  13. CISPLATIN [Suspect]
     Active Substance: CISPLATIN
     Indication: Brain neoplasm malignant
     Dosage: UNK (FIRST TO THIRD CYCLE) USED TO DILUTE SODIUM CHLOIRDE
     Route: 041
  14. CISPLATIN [Suspect]
     Active Substance: CISPLATIN
     Indication: Chemotherapy
     Dosage: 50MG, ONE TIME IN ONE DAY, DILUTED WITH 500ML OF SODIUM CHLORIDE (FOURTH CYCLE)
     Route: 041
     Dates: start: 20230901, end: 20230902

REACTIONS (1)
  - White blood cell count decreased [Recovering/Resolving]

NARRATIVE: CASE EVENT DATE: 20230829
